FAERS Safety Report 10483015 (Version 1)
Quarter: 2014Q3

REPORT INFORMATION
  Report Type: Spontaneous
  Country: US (occurrence: US)
  Receive Date: 20140929
  Receipt Date: 20140929
  Transmission Date: 20150326
  Serious: Yes (Hospitalization)
  Sender: FDA-Public Use
  Company Number: US-BRISTOL-MYERS SQUIBB COMPANY-21422811

PATIENT
  Age: 85 Year
  Sex: Female
  Weight: 60 kg

DRUGS (6)
  1. ATORVASTATIN [Concomitant]
     Active Substance: ATORVASTATIN
  2. COREG [Concomitant]
     Active Substance: CARVEDILOL
  3. COUMADIN [Suspect]
     Active Substance: WARFARIN SODIUM
     Dates: end: 201407
  4. IBRUTINIB [Suspect]
     Active Substance: IBRUTINIB
     Indication: MANTLE CELL LYMPHOMA
     Dosage: INTER ON 30JUN14?RESTA ON 20JUL14:140MG/DAY
     Route: 048
     Dates: start: 20140618
  5. BONIVA [Concomitant]
     Active Substance: IBANDRONATE SODIUM
  6. POTASSIUM [Concomitant]
     Active Substance: POTASSIUM

REACTIONS (6)
  - Cardiac failure congestive [Recovered/Resolved]
  - Atrial fibrillation [Unknown]
  - Granulocytopenia [Unknown]
  - Peripheral swelling [Recovered/Resolved]
  - Gingival bleeding [Recovered/Resolved]
  - Hypotension [Recovering/Resolving]
